FAERS Safety Report 4772356-1 (Version None)
Quarter: 2005Q3

REPORT INFORMATION
  Report Type: 
  Country: None (occurrence: None)
  Receive Date: 20050919
  Receipt Date: 20041012
  Transmission Date: 20060218
  Serious: No
  Sender: FDA-Public Use
  Company Number: US-BRISTOL-MYERS SQUIBB COMPANY-12729950

PATIENT
  Age: 53 Year
  Sex: Female
  Weight: 90 kg

DRUGS (6)
  1. KENALOG-40 [Suspect]
     Indication: TRIGGER FINGER
     Route: 014
     Dates: start: 20040928
  2. ZESTORETIC [Concomitant]
  3. LOMOTIL [Concomitant]
  4. POTASSIUM [Concomitant]
  5. TYLENOL W/ CODEINE [Concomitant]
  6. ASPIRIN [Concomitant]

REACTIONS (1)
  - POSTMENOPAUSAL HAEMORRHAGE [None]
